FAERS Safety Report 15019699 (Version 3)
Quarter: 2018Q3

REPORT INFORMATION
  Report Type: Report from Study
  Country: US (occurrence: US)
  Receive Date: 20180618
  Receipt Date: 20180718
  Transmission Date: 20181010
  Serious: No
  Sender: FDA-Public Use
  Company Number: US-ALEXION PHARMACEUTICALS INC.-A201807301

PATIENT
  Sex: Female

DRUGS (2)
  1. STRENSIQ [Suspect]
     Active Substance: ASFOTASE ALFA
     Indication: PRODUCT USED FOR UNKNOWN INDICATION
     Dosage: 2 MG/KG,QW
     Route: 058
  2. STRENSIQ [Suspect]
     Active Substance: ASFOTASE ALFA
     Dosage: 80 MG, QW
     Route: 058

REACTIONS (14)
  - Cognitive disorder [Unknown]
  - Migraine [Unknown]
  - Clumsiness [Unknown]
  - Migraine with aura [Unknown]
  - Malaise [Unknown]
  - Paraesthesia [Unknown]
  - Underdose [Not Recovered/Not Resolved]
  - Balance disorder [Unknown]
  - Dizziness [Unknown]
  - Tinnitus [Unknown]
  - Amnesia [Unknown]
  - Blood alkaline phosphatase increased [Unknown]
  - Sinusitis [Unknown]
  - Tremor [Unknown]

NARRATIVE: CASE EVENT DATE: 20180606
